FAERS Safety Report 8692430 (Version 5)
Quarter: 2013Q2

REPORT INFORMATION
  Report Type: Spontaneous
  Country: US (occurrence: US)
  Receive Date: 20120730
  Receipt Date: 20130523
  Transmission Date: 20140414
  Serious: Yes (Other)
  Sender: FDA-Public Use
  Company Number: US-ASTRAZENECA-2012SE51531

PATIENT
  Age: 63 Year
  Sex: Female

DRUGS (3)
  1. NEXIUM [Suspect]
     Indication: GASTROOESOPHAGEAL REFLUX DISEASE
     Route: 048
  2. NEXIUM [Suspect]
     Indication: GASTROOESOPHAGEAL REFLUX DISEASE
     Dosage: BID
     Route: 048
  3. CHEMOTHERAPY [Suspect]
     Route: 065

REACTIONS (11)
  - Non-Hodgkin^s lymphoma [Unknown]
  - Neoplasm malignant [Unknown]
  - Hiatus hernia [Unknown]
  - Gastric ulcer [Unknown]
  - Polyp [Unknown]
  - Gout [Unknown]
  - Gastrooesophageal reflux disease [Unknown]
  - Diverticulitis [Unknown]
  - Impaired healing [Unknown]
  - Off label use [Unknown]
  - Drug dose omission [Unknown]
